FAERS Safety Report 4441362-9 (Version None)
Quarter: 2004Q3

REPORT INFORMATION
  Report Type: 
  Country: None (occurrence: None)
  Receive Date: 20040728
  Receipt Date: 20040326
  Transmission Date: 20050211
  Serious: No
  Sender: FDA-Public Use
  Company Number: USA040363307

PATIENT
  Age: 12 Year
  Sex: Male
  Weight: 60 kg

DRUGS (1)
  1. STRATTERA [Suspect]
     Indication: VISION BLURRED
     Dosage: 40 MG IN THE EVENING
     Dates: start: 20040316

REACTIONS (4)
  - CHEST DISCOMFORT [None]
  - COUGH [None]
  - NASOPHARYNGITIS [None]
  - STOMACH DISCOMFORT [None]
